FAERS Safety Report 4562533-7 (Version None)
Quarter: 2005Q1

REPORT INFORMATION
  Report Type: 
  Country: None (occurrence: None)
  Receive Date: 20050121
  Receipt Date: 20041230
  Transmission Date: 20050727
  Serious: Yes (Other)
  Sender: FDA-Public Use
  Company Number: DE_040613731

PATIENT
  Age: 61 Year
  Sex: Female

DRUGS (7)
  1. FORTEO [Suspect]
     Indication: OSTEOPOROSIS
     Dosage: 20 UG/1 DAY
     Dates: start: 20031101, end: 20040601
  2. SOTALOL HCL [Concomitant]
  3. FENTANYL [Concomitant]
  4. IBUPROFEN [Concomitant]
  5. CALCIMAGON-D3 [Concomitant]
  6. ESOMEPRAZOLE [Concomitant]
  7. ACETYLSALICYLIC ACID SRT [Concomitant]

REACTIONS (14)
  - ARTHRALGIA [None]
  - BACK PAIN [None]
  - BONE PAIN [None]
  - DIZZINESS [None]
  - EXOSTOSIS [None]
  - HEADACHE [None]
  - HYPERREFLEXIA [None]
  - INFLUENZA LIKE ILLNESS [None]
  - METAPLASIA [None]
  - MICROANGIOPATHY [None]
  - NAUSEA [None]
  - NODULE ON EXTREMITY [None]
  - ODYNOPHAGIA [None]
  - WOUND DEHISCENCE [None]
